FAERS Safety Report 4589089-7 (Version None)
Quarter: 2005Q1

REPORT INFORMATION
  Report Type: 
  Country: None (occurrence: None)
  Receive Date: 20050222
  Receipt Date: 20050216
  Transmission Date: 20050727
  Serious: Yes (Other)
  Sender: FDA-Public Use
  Company Number: GB-MERCK-0502GBR00165

PATIENT
  Age: 67 Year
  Sex: Female

DRUGS (4)
  1. FOSAMAX [Suspect]
     Indication: OSTEOPOROSIS
     Route: 048
     Dates: start: 20050205
  2. FOSAMAX [Suspect]
     Route: 048
     Dates: start: 20040101
  3. RANITIDINE [Concomitant]
     Route: 048
     Dates: start: 20040101
  4. ATORVASTATIN CALCIUM [Concomitant]
     Route: 048
     Dates: start: 20040101

REACTIONS (2)
  - DIZZINESS [None]
  - MALAISE [None]
